FAERS Safety Report 16423287 (Version 1)
Quarter: 2019Q2

REPORT INFORMATION
  Report Type: Spontaneous
  Country: US (occurrence: US)
  Receive Date: 20190612
  Receipt Date: 20190612
  Transmission Date: 20190711
  Serious: Yes (Hospitalization)
  Sender: FDA-Public Use
  Company Number: US-INDIVIOR INC.-INDV-119949-2019

PATIENT
  Sex: Male

DRUGS (2)
  1. SUBOXONE [Suspect]
     Active Substance: BUPRENORPHINE HYDROCHLORIDE\NALOXONE HYDROCHLORIDE
     Indication: DRUG DEPENDENCE
     Dosage: 2MG (HALF IN THE MORNING, HALF IN THE EVENING), TWICE DAILY
     Route: 065
     Dates: start: 2010, end: 201905
  2. SUBOXONE [Suspect]
     Active Substance: BUPRENORPHINE HYDROCHLORIDE\NALOXONE HYDROCHLORIDE
     Dosage: UNK
     Route: 065
     Dates: start: 20190504

REACTIONS (5)
  - Inappropriate schedule of product administration [Unknown]
  - Back disorder [Recovered/Resolved]
  - Wrong technique in product usage process [Unknown]
  - Drug withdrawal syndrome [Recovered/Resolved]
  - Therapy cessation [Recovered/Resolved]

NARRATIVE: CASE EVENT DATE: 2010
